FAERS Safety Report 23937855 (Version 2)
Quarter: 2024Q4

REPORT INFORMATION
  Report Type: Spontaneous
  Country: GB (occurrence: GB)
  Receive Date: 20240604
  Receipt Date: 20241119
  Transmission Date: 20250115
  Serious: No
  Sender: PFIZER
  Company Number: GB-PFIZER INC-PV202400065612

PATIENT
  Age: 10 Year
  Sex: Female

DRUGS (1)
  1. NGENLA [Suspect]
     Active Substance: SOMATROGON-GHLA
     Indication: Growth hormone deficiency
     Dosage: 26 MG, WEEKLY
     Route: 058
     Dates: start: 20240518

REACTIONS (3)
  - Device leakage [Recovered/Resolved]
  - Exposure via skin contact [Recovered/Resolved]
  - Accidental exposure to product [Recovered/Resolved]
